FAERS Safety Report 8856435 (Version 1)
Quarter: 2012Q4

REPORT INFORMATION
  Report Type: Spontaneous
  Country: IT (occurrence: None)
  Receive Date: 20121019
  Receipt Date: 20121019
  Transmission Date: 20130627
  Serious: Yes (Hospitalization)
  Sender: FDA-Public Use
  Company Number: GER/ITL/12/0026202

PATIENT
  Age: 76 Year
  Sex: Female

DRUGS (1)
  1. LEVOFLOXACIN (LEVOFLOXACIN HEMIHYDRATE) [Suspect]
     Indication: FEVER
     Route: 048
     Dates: start: 20120720, end: 20120722

REACTIONS (4)
  - Headache [None]
  - Dizziness [None]
  - Vomiting [None]
  - Decreased appetite [None]
